FAERS Safety Report 6820445-X (Version None)
Quarter: 2010Q3

REPORT INFORMATION
  Report Type: 
  Country: None (occurrence: None)
  Receive Date: 20100707
  Receipt Date: 20100625
  Transmission Date: 20110219
  Serious: Yes (Other)
  Sender: FDA-Public Use
  Company Number: US-PFIZER INC-2010079881

PATIENT
  Sex: Female

DRUGS (6)
  1. LYRICA [Suspect]
     Indication: DIABETIC NEUROPATHY
     Dosage: 75 MG, DAILY
     Dates: start: 20100101, end: 20100601
  2. LYRICA [Suspect]
     Indication: BURNING SENSATION
  3. NEURONTIN [Suspect]
     Indication: DIABETIC NEUROPATHY
     Dosage: UNK, DAILY
     Dates: start: 20100601, end: 20100601
  4. NEURONTIN [Suspect]
     Indication: BURNING SENSATION
  5. LISINOPRIL [Concomitant]
     Indication: HYPERTENSION
     Dosage: UNK
  6. CLONAZEPAM [Concomitant]
     Indication: RESTLESS LEGS SYNDROME
     Dosage: UNK

REACTIONS (9)
  - ANXIETY [None]
  - DYSKINESIA [None]
  - FACE OEDEMA [None]
  - HEART RATE IRREGULAR [None]
  - HYPERSENSITIVITY [None]
  - INAPPROPRIATE SCHEDULE OF DRUG ADMINISTRATION [None]
  - LOCALISED OEDEMA [None]
  - MUSCLE TWITCHING [None]
  - TACHYCARDIA [None]
